FAERS Safety Report 7441489-3 (Version None)
Quarter: 2011Q2

REPORT INFORMATION
  Report Type: 
  Country: None (occurrence: None)
  Receive Date: 20110425
  Receipt Date: 20110425
  Transmission Date: 20111010
  Serious: Yes (Death, Hospitalization, Other)
  Sender: FDA-Public Use
  Company Number: None

PATIENT
  Age: 69 Year
  Sex: Male
  Weight: 70 kg

DRUGS (1)
  1. NITROFURANTOIN [Suspect]
     Indication: PROPHYLAXIS URINARY TRACT INFECTION
     Dosage: 100 MG Q24H PO ABOUT } 2 YEARS
     Route: 048

REACTIONS (9)
  - HAEMATEMESIS [None]
  - THROMBOCYTOPENIA [None]
  - ASCITES [None]
  - NAUSEA [None]
  - PLEURAL EFFUSION [None]
  - RENAL IMPAIRMENT [None]
  - ACIDOSIS [None]
  - VOMITING [None]
  - HEPATIC ENZYME INCREASED [None]
